FAERS Safety Report 5710680-6 (Version None)
Quarter: 2008Q2

REPORT INFORMATION
  Report Type: 
  Country: None (occurrence: None)
  Receive Date: 20080420
  Receipt Date: 20080409
  Transmission Date: 20081010
  Serious: Yes (Hospitalization)
  Sender: FDA-Public Use
  Company Number: PHBS2006JP08329

PATIENT
  Age: 42 Year
  Sex: Female

DRUGS (18)
  1. NEORAL [Suspect]
     Indication: BONE MARROW TRANSPLANT
     Dosage: 100 MG/D
     Route: 048
     Dates: start: 20051101
  2. NEORAL [Suspect]
     Dosage: 50 MG/D
     Route: 048
  3. NEORAL [Suspect]
     Dosage: 75 MG/D
     Route: 048
  4. ANAFRANIL [Concomitant]
     Indication: PAIN
     Dosage: 10 MG/D
     Dates: start: 20051003
  5. RIVOTRIL [Concomitant]
     Indication: PAIN
     Dosage: 0.5 MG/DAY
     Dates: start: 20051003
  6. CHLORPROMAZINE HCL [Concomitant]
     Indication: PAIN
     Dates: start: 20051003
  7. PREDONINE [Concomitant]
     Dosage: 7.5 MG/D
  8. SANDIMMUNE [Suspect]
     Indication: BONE MARROW TRANSPLANT
     Dosage: 60 MG/D
     Route: 042
     Dates: start: 20051001
  9. SANDIMMUNE [Suspect]
     Dosage: 80 MG/D
     Route: 042
     Dates: end: 20051031
  10. PROGRAF [Suspect]
     Indication: BONE MARROW TRANSPLANT
     Dosage: 1.3 MG/D
     Route: 042
     Dates: start: 20050906
  11. PROGRAF [Suspect]
     Dosage: 0.4 MG/D
     Route: 042
  12. PROGRAF [Suspect]
     Route: 042
     Dates: end: 20050928
  13. XYLOCAINE [Concomitant]
     Indication: PAIN
     Route: 041
     Dates: start: 20050929
  14. METHYLPREDNISOLONE [Concomitant]
     Indication: GRAFT VERSUS HOST DISEASE
  15. MORPHINE [Concomitant]
     Indication: PAIN
     Dosage: 20 MG/DAY
     Route: 042
  16. KETAMINE HCL [Concomitant]
     Indication: PAIN
     Route: 041
  17. LIDOCAINE [Concomitant]
     Indication: PAIN
     Dosage: 50 MG, TID
     Route: 041
  18. LIDOCAINE [Concomitant]
     Dosage: 60 MG/HOUR

REACTIONS (8)
  - ALLODYNIA [None]
  - APRAXIA [None]
  - DEPRESSION [None]
  - GAIT DISTURBANCE [None]
  - INSOMNIA [None]
  - PAIN [None]
  - PAIN IN EXTREMITY [None]
  - PRURITUS [None]
